FAERS Safety Report 8323305-0 (Version None)
Quarter: 2012Q2

REPORT INFORMATION
  Report Type: 
  Country: None (occurrence: None)
  Receive Date: 20120430
  Receipt Date: 20120425
  Transmission Date: 20120825
  Serious: No
  Sender: FDA-Public Use
  Company Number: US-PFIZER INC-2012103154

PATIENT
  Sex: Female
  Weight: 113.38 kg

DRUGS (1)
  1. GEODON [Suspect]
     Dosage: 80 MG, 1X/DAY
     Route: 048
     Dates: start: 20100201

REACTIONS (2)
  - MEMORY IMPAIRMENT [None]
  - DYSKINESIA [None]
